FAERS Safety Report 5786461-4 (Version None)
Quarter: 2008Q2

REPORT INFORMATION
  Report Type: 
  Country: None (occurrence: None)
  Receive Date: 20080619
  Receipt Date: 20080610
  Transmission Date: 20081010
  Serious: Yes (Other)
  Sender: FDA-Public Use
  Company Number: 2008AP000346

PATIENT
  Age: 48 Year
  Sex: Female

DRUGS (7)
  1. PAROXETINE HCL [Suspect]
     Indication: DEPRESSION
     Dosage: 10 MG; PO; QD; 10 MG; PO; QD; 0.5 TAB; PO; QD; 10 MG; QD PO; 4 MG; ORAL_LIQ_PO; QD; 20 MG; PO; QD; 2
     Route: 048
     Dates: start: 19990301
  2. PAROXETINE HCL [Suspect]
     Indication: DEPRESSION
     Dosage: 10 MG; PO; QD; 10 MG; PO; QD; 0.5 TAB; PO; QD; 10 MG; QD PO; 4 MG; ORAL_LIQ_PO; QD; 20 MG; PO; QD; 2
     Route: 048
     Dates: start: 20050526
  3. PAROXETINE HCL [Suspect]
     Indication: DEPRESSION
     Dosage: 10 MG; PO; QD; 10 MG; PO; QD; 0.5 TAB; PO; QD; 10 MG; QD PO; 4 MG; ORAL_LIQ_PO; QD; 20 MG; PO; QD; 2
     Route: 048
     Dates: start: 20050614
  4. PAROXETINE HCL [Suspect]
     Indication: DEPRESSION
     Dosage: 10 MG; PO; QD; 10 MG; PO; QD; 0.5 TAB; PO; QD; 10 MG; QD PO; 4 MG; ORAL_LIQ_PO; QD; 20 MG; PO; QD; 2
     Route: 048
     Dates: start: 20060504
  5. PAROXETINE HCL [Suspect]
     Indication: DEPRESSION
     Dosage: 10 MG; PO; QD; 10 MG; PO; QD; 0.5 TAB; PO; QD; 10 MG; QD PO; 4 MG; ORAL_LIQ_PO; QD; 20 MG; PO; QD; 2
     Route: 048
     Dates: start: 20060706
  6. DIAZEPAM [Concomitant]
  7. FLUOXETINE HCL [Concomitant]

REACTIONS (26)
  - ADJUSTMENT DISORDER [None]
  - ALCOHOL PROBLEM [None]
  - ANKLE FRACTURE [None]
  - ANXIETY [None]
  - APATHY [None]
  - ARTHRALGIA [None]
  - DEPRESSED MOOD [None]
  - DIZZINESS [None]
  - DRUG WITHDRAWAL SYNDROME [None]
  - FALL [None]
  - FATIGUE [None]
  - FEELING HOT [None]
  - GAMMA-GLUTAMYLTRANSFERASE INCREASED [None]
  - HEADACHE [None]
  - HEART RATE INCREASED [None]
  - HYPERHIDROSIS [None]
  - INJURY [None]
  - IRRITABILITY [None]
  - LEGAL PROBLEM [None]
  - NIGHTMARE [None]
  - PALPITATIONS [None]
  - PARAESTHESIA [None]
  - POOR QUALITY SLEEP [None]
  - SUICIDAL IDEATION [None]
  - TEARFULNESS [None]
  - TYPE 2 DIABETES MELLITUS [None]
